FAERS Safety Report 25471235 (Version 2)
Quarter: 2025Q3

REPORT INFORMATION
  Report Type: Spontaneous
  Country: JP (occurrence: JP)
  Receive Date: 20250624
  Receipt Date: 20250701
  Transmission Date: 20251020
  Serious: Yes (Life-Threatening, Other)
  Sender: AMGEN
  Company Number: JP-TAKEDA-2025TJP006134

PATIENT
  Sex: Male

DRUGS (4)
  1. VECTIBIX [Suspect]
     Active Substance: PANITUMUMAB
     Indication: Colon cancer recurrent
     Route: 041
     Dates: start: 20250409
  2. OXALIPLATIN [Suspect]
     Active Substance: OXALIPLATIN
     Indication: Colon cancer recurrent
     Route: 065
  3. FLUOROURACIL [Suspect]
     Active Substance: FLUOROURACIL
     Indication: Colon cancer recurrent
     Route: 065
  4. LEVOLEUCOVORIN CALCIUM [Suspect]
     Active Substance: LEVOLEUCOVORIN CALCIUM
     Indication: Colon cancer recurrent
     Route: 065

REACTIONS (1)
  - Anaphylactic shock [Recovered/Resolved]

NARRATIVE: CASE EVENT DATE: 20250409
